FAERS Safety Report 6314463-8 (Version None)
Quarter: 2009Q3

REPORT INFORMATION
  Report Type: 
  Country: None (occurrence: None)
  Receive Date: 20090819
  Receipt Date: 20090814
  Transmission Date: 20100115
  Serious: Yes (Other)
  Sender: FDA-Public Use
  Company Number: US-BRISTOL-MYERS SQUIBB COMPANY-14741698

PATIENT
  Age: 13 Year
  Sex: Female
  Weight: 50 kg

DRUGS (5)
  1. ABILIFY [Suspect]
     Indication: DEPRESSION
     Dosage: ON 27JUL09 DOSE INCRSD-5MG ON 04AUG09 DOSE INCRSD-10MG
     Route: 048
     Dates: start: 20090722, end: 20090813
  2. SEROQUEL [Suspect]
     Dosage: SEROQUEL XR 150MG TABS.
  3. LUVOX [Concomitant]
  4. NASONEX [Concomitant]
     Dosage: FORM- NASAL SPRAY
     Route: 045
  5. TYLENOL (CAPLET) [Concomitant]

REACTIONS (6)
  - DIZZINESS [None]
  - HYPOAESTHESIA ORAL [None]
  - OEDEMA [None]
  - SWOLLEN TONGUE [None]
  - TINNITUS [None]
  - WEIGHT INCREASED [None]
